FAERS Safety Report 16039081 (Version 1)
Quarter: 2019Q1

REPORT INFORMATION
  Report Type: Spontaneous
  Country: GE (occurrence: GE)
  Receive Date: 20190306
  Receipt Date: 20190306
  Transmission Date: 20190418
  Serious: Yes (Other)
  Sender: FDA-Public Use
  Company Number: GE-FRESENIUS KABI-FK201902382

PATIENT
  Age: 29 Year

DRUGS (3)
  1. RITUXIMAB. [Suspect]
     Active Substance: RITUXIMAB
     Indication: IMMUNOSUPPRESSANT DRUG THERAPY
     Route: 065
  2. BORTEZOMIB (MANUFACTURER UNKNOWN) [Suspect]
     Active Substance: BORTEZOMIB
     Indication: IMMUNOSUPPRESSANT DRUG THERAPY
     Route: 065
  3. PREDNISONE. [Suspect]
     Active Substance: PREDNISONE
     Indication: IMMUNOSUPPRESSANT DRUG THERAPY
     Dosage: PREDNISONE TAPER
     Route: 065

REACTIONS (3)
  - Acute endocarditis [Not Recovered/Not Resolved]
  - Bacteraemia [Not Recovered/Not Resolved]
  - Endocarditis bacterial [Not Recovered/Not Resolved]
